FAERS Safety Report 7438319-2 (Version None)
Quarter: 2011Q2

REPORT INFORMATION
  Report Type: 
  Country: None (occurrence: None)
  Receive Date: 20110426
  Receipt Date: 20110412
  Transmission Date: 20111010
  Serious: Yes (Other)
  Sender: FDA-Public Use
  Company Number: FR-JNJFOC-20110406466

PATIENT
  Age: 48 Year
  Sex: Male

DRUGS (4)
  1. INFLIXIMAB [Suspect]
     Indication: COLITIS
     Route: 042
  2. CYCLOSPORINE [Suspect]
     Indication: COLITIS
  3. IMMUNOSUPPRESANT DRUGS [Concomitant]
     Indication: COLITIS
  4. CORTICOSTEROIDS [Concomitant]
     Indication: COLITIS

REACTIONS (3)
  - LIVER ABSCESS [None]
  - PORTAL VEIN THROMBOSIS [None]
  - FUSOBACTERIUM INFECTION [None]
